FAERS Safety Report 8859575 (Version 1)
Quarter: 2012Q4

REPORT INFORMATION
  Report Type: Spontaneous
  Country: TW (occurrence: None)
  Receive Date: 20121022
  Receipt Date: 20121022
  Transmission Date: 20130627
  Serious: No
  Sender: FDA-Public Use
  Company Number: FK201203052

PATIENT
  Age: 58 Year
  Sex: Female

DRUGS (3)
  1. DEXAMETHASONE INJECTION (MANUFACTURER UNKNOWN)(DEXAMETHASONE SODIUM PHOSPHATE)(DEXAMETHASONE SODIUM^PHOSPHATE) [Suspect]
     Indication: MULTIPLE MYELOMA
  2. VINCRISTINE (VINCRISTINE) [Concomitant]
  3. ADRIAMYCIN (DOXORUBICIN) [Concomitant]

REACTIONS (3)
  - Tumour lysis syndrome [None]
  - Decreased appetite [None]
  - Oliguria [None]
